FAERS Safety Report 21599240 (Version 1)
Quarter: 2022Q4

REPORT INFORMATION
  Report Type: Spontaneous
  Country: US (occurrence: None)
  Receive Date: 20221114
  Receipt Date: 20221114
  Transmission Date: 20230112
  Serious: No
  Sender: FDA-Public Use
  Company Number: None

PATIENT
  Age: 76 Year
  Sex: Female
  Weight: 84.37 kg

DRUGS (55)
  1. KISQALI [Suspect]
     Active Substance: RIBOCICLIB
     Dosage: OTHER FREQUENCY : 21D OF 28DAYS;?
     Route: 048
  2. ADHA [Concomitant]
  3. ACETIC ACID EAR DROP [Concomitant]
  4. ACT DRY MOUTH [Concomitant]
  5. ALEVE [Concomitant]
     Active Substance: NAPROXEN SODIUM
  6. ALKA-SELTZER [Concomitant]
     Active Substance: ANHYDROUS CITRIC ACID\ASPIRIN\SODIUM BICARBONATE
  7. ALLEGRA [Concomitant]
     Active Substance: FEXOFENADINE HYDROCHLORIDE
  8. ALPHA LIPOIC ACID [Concomitant]
     Active Substance: .ALPHA.-LIPOIC ACID
  9. BENZONATATE [Concomitant]
     Active Substance: BENZONATATE
  10. BIOTENE NOS [Concomitant]
     Active Substance: CETYLPYRIDINIUM CHLORIDE OR SODIUM FLUORIDE OR SODIUM MONOFLUOROPHOSPHATE OR GLUCOSE OXIDASE\LACTOFE
  11. BIOTIN [Concomitant]
     Active Substance: BIOTIN
  12. BISACODYL [Concomitant]
     Active Substance: BISACODYL
  13. BUPROPION [Concomitant]
     Active Substance: BUPROPION
  14. CALCIUM [Concomitant]
     Active Substance: CALCIUM
  15. CANNABIDIOL [Concomitant]
     Active Substance: CANNABIDIOL
  16. CANNABIDIOL [Concomitant]
     Active Substance: CANNABIDIOL
  17. CERVA [Concomitant]
  18. CLARITIN [Concomitant]
  19. COLLAGENASE [Concomitant]
     Active Substance: COLLAGENASE CLOSTRIDIUM HISTOLYTICUM
  20. FISH OIL [Concomitant]
     Active Substance: FISH OIL
  21. VITAMIN C [Concomitant]
     Active Substance: ASCORBIC ACID
  22. DELSYM [Concomitant]
     Active Substance: DEXTROMETHORPHAN
  23. DEXAMETHASONE [Concomitant]
     Active Substance: DEXAMETHASONE
  24. DIAZEPAM [Concomitant]
     Active Substance: DIAZEPAM
  25. DIFLUCAN [Concomitant]
     Active Substance: FLUCONAZOLE
  26. DOCUSATE [Concomitant]
     Active Substance: DOCUSATE
  27. FEXOFENADINE [Concomitant]
     Active Substance: FEXOFENADINE HYDROCHLORIDE
  28. FLUTICASONE [Concomitant]
     Active Substance: FLUTICASONE
  29. CANNABIS SATIVA SEED OIL\HERBALS [Concomitant]
     Active Substance: CANNABIS SATIVA SEED OIL\HERBALS
  30. IMITREX [Concomitant]
     Active Substance: SUMATRIPTAN SUCCINATE
  31. LETROZOLE [Concomitant]
     Active Substance: LETROZOLE
  32. LIPO FLAVOOID PLUS [Concomitant]
  33. LOTEMAX [Concomitant]
     Active Substance: LOTEPREDNOL ETABONATE
  34. MAGNESIUM HYDROXIDE [Concomitant]
     Active Substance: MAGNESIUM HYDROXIDE
  35. METAMUCIL [Concomitant]
     Active Substance: PLANTAGO SEED
  36. METHYLPREDNISOLONE [Concomitant]
     Active Substance: METHYLPREDNISOLONE
  37. NEULASTA [Concomitant]
     Active Substance: PEGFILGRASTIM
  38. ONDANSETRON [Concomitant]
     Active Substance: ONDANSETRON
  39. PANTOPRAZOLE [Concomitant]
     Active Substance: PANTOPRAZOLE
  40. PEPTO-BISMOL [Concomitant]
     Active Substance: BISMUTH SUBSALICYLATE
  41. PREVIDENT [Concomitant]
     Active Substance: SODIUM FLUORIDE
  42. PROCHLORPERAZINE [Concomitant]
     Active Substance: PROCHLORPERAZINE
  43. REFRESH CLASSIC [Concomitant]
     Active Substance: POLYVINYL ALCOHOL\POVIDONE
  44. RESTASIS [Concomitant]
     Active Substance: CYCLOSPORINE
  45. RISPERDAL [Concomitant]
     Active Substance: RISPERIDONE
  46. SUMATRIPTAN [Concomitant]
     Active Substance: SUMATRIPTAN
  47. THERATEARS [Concomitant]
     Active Substance: CARBOXYMETHYLCELLULOSE SODIUM
  48. TROSPIUM CHLORIDE [Concomitant]
     Active Substance: TROSPIUM CHLORIDE
  49. TYLENOL [Concomitant]
     Active Substance: ACETAMINOPHEN
  50. ULTRAFLORA [Concomitant]
  51. VESICARE [Concomitant]
     Active Substance: SOLIFENACIN SUCCINATE
  52. VITAMIN D3 [Concomitant]
     Active Substance: CHOLECALCIFEROL
  53. VITAMIN E [Concomitant]
     Active Substance: .ALPHA.-TOCOPHEROL
  54. VIVISCAL [Concomitant]
  55. XGEVA [Concomitant]
     Active Substance: DENOSUMAB

REACTIONS (2)
  - Therapy interrupted [None]
  - Laboratory test abnormal [None]
